FAERS Safety Report 7913232-2 (Version None)
Quarter: 2011Q4

REPORT INFORMATION
  Report Type: 
  Country: None (occurrence: None)
  Receive Date: 20111114
  Receipt Date: 20111108
  Transmission Date: 20120403
  Serious: Yes (Life-Threatening, Hospitalization)
  Sender: FDA-Public Use
  Company Number: US-ASTRAZENECA-2011SE67760

PATIENT
  Age: 78 Year
  Sex: Female

DRUGS (3)
  1. ZOCOR [Concomitant]
  2. UNSPECIFIED ANTIHYPERTENSIVE [Suspect]
  3. CRESTOR [Suspect]
     Route: 048

REACTIONS (1)
  - POLYMYOSITIS [None]
